FAERS Safety Report 7347049-7 (Version None)
Quarter: 2011Q1

REPORT INFORMATION
  Report Type: 
  Country: None (occurrence: None)
  Receive Date: 20110303
  Receipt Date: 20110217
  Transmission Date: 20110831
  Serious: Yes (Other)
  Sender: FDA-Public Use
  Company Number: 005938

PATIENT
  Sex: Male

DRUGS (2)
  1. CIMZIA [Suspect]
  2. CIMZIA [Suspect]
     Indication: CROHN'S DISEASE
     Dosage: (400 MG 1X/4 WEEKS,  SUBCUTANEOUS)
     Route: 058
     Dates: start: 20081201

REACTIONS (3)
  - INFECTION [None]
  - ABDOMINAL PAIN [None]
  - ABDOMINAL NEOPLASM [None]
